FAERS Safety Report 9797963 (Version 2)
Quarter: 2014Q1

REPORT INFORMATION
  Report Type: Spontaneous
  Country: JP (occurrence: JP)
  Receive Date: 20140106
  Receipt Date: 20140123
  Transmission Date: 20141002
  Serious: No
  Sender: FDA-Public Use
  Company Number: JP-OTSUKA-JP-2013-16217

PATIENT
  Age: 14 Year
  Sex: 0

DRUGS (2)
  1. BUSULFEX [Suspect]
     Indication: HYPER IGM SYNDROME
     Dosage: UNK UNKNOWN, UNKNOWN
     Route: 041
  2. CYCLOPHOSPHAMIDE MONOHYDRATE [Concomitant]
     Indication: HYPER IGM SYNDROME
     Dosage: UNK UNKNOWN, UNKNOWN

REACTIONS (1)
  - No adverse event [Unknown]
